FAERS Safety Report 25100897 (Version 3)
Quarter: 2025Q2

REPORT INFORMATION
  Report Type: Report from Study
  Country: BR (occurrence: BR)
  Receive Date: 20250320
  Receipt Date: 20250430
  Transmission Date: 20250717
  Serious: Yes (Other)
  Sender: JOHNSON AND JOHNSON
  Company Number: BR-JNJFOC-20250338384

PATIENT
  Age: 74 Year
  Sex: Female
  Weight: 61 kg

DRUGS (5)
  1. SIMPONI [Suspect]
     Active Substance: GOLIMUMAB
     Indication: Rheumatoid arthritis
     Route: 058
     Dates: start: 20250110
  2. SIMPONI [Suspect]
     Active Substance: GOLIMUMAB
  3. NIMESULINA [Concomitant]
  4. METAMIZOLE [Concomitant]
     Active Substance: METAMIZOLE
  5. DEXAMETHASONE [Concomitant]
     Active Substance: DEXAMETHASONE

REACTIONS (2)
  - Rheumatoid arthritis [Recovering/Resolving]
  - Chikungunya virus infection [Unknown]
